FAERS Safety Report 10017709 (Version 1)
Quarter: 2014Q1

REPORT INFORMATION
  Report Type: Spontaneous
  Country: US (occurrence: US)
  Receive Date: 20140318
  Receipt Date: 20140318
  Transmission Date: 20141002
  Serious: No
  Sender: FDA-Public Use
  Company Number: US-BRISTOL-MYERS SQUIBB COMPANY-17439639

PATIENT
  Age: 64 Year
  Sex: Female
  Weight: 61.22 kg

DRUGS (1)
  1. ERBITUX [Suspect]
     Indication: LYMPHOMA

REACTIONS (4)
  - Rash pustular [Recovering/Resolving]
  - Dry skin [Unknown]
  - Hair growth abnormal [Unknown]
  - Erythema [Unknown]
